FAERS Safety Report 6677181-2 (Version None)
Quarter: 2010Q2

REPORT INFORMATION
  Report Type: 
  Country: None (occurrence: None)
  Receive Date: 20100412
  Receipt Date: 20100405
  Transmission Date: 20101027
  Serious: Yes (Life-Threatening, Hospitalization)
  Sender: FDA-Public Use
  Company Number: GR-MERCK-1004USA00584

PATIENT
  Age: 64 Year
  Sex: Female

DRUGS (2)
  1. DECADRON [Suspect]
     Indication: ANAPLASTIC ASTROCYTOMA
     Route: 048
  2. TEMOZOLOMIDE [Suspect]
     Indication: CHEMOTHERAPY
     Route: 048

REACTIONS (1)
  - PNEUMOCYSTIS JIROVECI PNEUMONIA [None]
